FAERS Safety Report 6680675-7 (Version None)
Quarter: 2010Q2

REPORT INFORMATION
  Report Type: 
  Country: None (occurrence: None)
  Receive Date: 20100414
  Receipt Date: 20100408
  Transmission Date: 20101027
  Serious: Yes (Other)
  Sender: FDA-Public Use
  Company Number: US-PFIZER INC-2010021213

PATIENT
  Sex: Female
  Weight: 60.327 kg

DRUGS (13)
  1. REVATIO [Suspect]
     Indication: PULMONARY HYPERTENSION
     Dosage: 20 MG, 3X/DAY
     Dates: start: 20090101
  2. LANOXIN [Suspect]
     Indication: HEART VALVE INCOMPETENCE
     Dosage: UNK
     Dates: start: 20090601
  3. TRACLEER [Concomitant]
     Indication: PULMONARY HYPERTENSION
     Dosage: UNK
  4. OXYGEN [Concomitant]
     Dosage: UNK
  5. KLONOPIN [Concomitant]
     Dosage: UNK
  6. PROAIR HFA [Concomitant]
     Dosage: UNK
  7. COREG [Concomitant]
     Dosage: UNK
  8. AMBIEN [Concomitant]
     Dosage: UNK
  9. NEXIUM [Concomitant]
     Dosage: UNK
  10. DEMADEX [Concomitant]
     Dosage: UNK
  11. SPIRIVA [Concomitant]
     Dosage: UNK
  12. DETROL LA [Concomitant]
     Dosage: UNK
  13. VALTREX [Concomitant]
     Dosage: UNK

REACTIONS (5)
  - CARDIAC FAILURE CONGESTIVE [None]
  - DEAFNESS [None]
  - EAR PAIN [None]
  - HEART VALVE INCOMPETENCE [None]
  - HYPOTENSION [None]
